FAERS Safety Report 5619438-X (Version None)
Quarter: 2008Q1

REPORT INFORMATION
  Report Type: 
  Country: None (occurrence: None)
  Receive Date: 20080109
  Receipt Date: 20070328
  Transmission Date: 20080703
  Serious: Yes (Other)
  Sender: FDA-Public Use
  Company Number: WAES 0703USA05612

PATIENT
  Age: 39 Year
  Sex: Female

DRUGS (8)
  1. ZETIA [Suspect]
     Dosage: PO
     Route: 048
     Dates: end: 20070306
  2. ADVAIR HFA [Concomitant]
  3. CLOMID [Concomitant]
  4. ELAVIL [Concomitant]
  5. LUNESTA [Concomitant]
  6. NASONEX [Concomitant]
  7. SINGULAIR [Concomitant]
  8. ZYRTEC [Concomitant]

REACTIONS (2)
  - ALANINE AMINOTRANSFERASE INCREASED [None]
  - ASPARTATE AMINOTRANSFERASE INCREASED [None]
